FAERS Safety Report 9628486 (Version 3)
Quarter: 2013Q4

REPORT INFORMATION
  Report Type: Spontaneous
  Country: US (occurrence: US)
  Receive Date: 20131017
  Receipt Date: 20131031
  Transmission Date: 20140711
  Serious: No
  Sender: FDA-Public Use
  Company Number: US-PFIZER INC-2013104248

PATIENT
  Age: 65 Year
  Sex: Female

DRUGS (13)
  1. XELJANZ [Suspect]
     Indication: RHEUMATOID ARTHRITIS
     Dosage: 5 MG, 2X/DAY
     Route: 048
     Dates: start: 2013
  2. ALLEGRA [Concomitant]
     Dosage: 30 MG
  3. PRO-AIR [Concomitant]
     Dosage: UNK
     Route: 055
  4. KRILL OIL [Concomitant]
     Dosage: 300 MG
  5. VITAMIN D [Concomitant]
     Dosage: 1000 IU
  6. CALCIUM [Concomitant]
     Dosage: 500 MG
  7. ESTRADIOL [Concomitant]
     Dosage: 0.5 MG
  8. FOLIC ACID [Concomitant]
     Dosage: 1 MG
  9. METHOTREXATE [Concomitant]
     Dosage: 2.5 MG
  10. LISINOPRIL [Concomitant]
     Dosage: 2.5 MG
  11. TRAMADOL HYDROCHLORIDE [Concomitant]
     Dosage: 50 MG
  12. AMLODIPINE [Concomitant]
     Dosage: 2.5 MG
  13. PREDNISONE [Concomitant]
     Dosage: 1 MG

REACTIONS (3)
  - Circumstance or information capable of leading to medication error [Unknown]
  - Oropharyngeal pain [Recovered/Resolved]
  - Viral infection [Recovered/Resolved]
